FAERS Safety Report 10203910 (Version 2)
Quarter: 2014Q2

REPORT INFORMATION
  Report Type: Spontaneous
  Country: JP (occurrence: JP)
  Receive Date: 20140529
  Receipt Date: 20140610
  Transmission Date: 20141212
  Serious: Yes (Other)
  Sender: FDA-Public Use
  Company Number: JP-ELI_LILLY_AND_COMPANY-JP201405008168

PATIENT
  Age: 31 Year
  Sex: Female

DRUGS (2)
  1. CYMBALTA [Suspect]
     Indication: MAJOR DEPRESSION
     Dosage: 20 MG, QD
     Route: 048
     Dates: start: 20140514
  2. IBUPROFEN [Concomitant]
     Indication: HEADACHE
     Dosage: 2 DF, PRN
     Route: 048
     Dates: start: 20140301

REACTIONS (2)
  - Abortion [Recovered/Resolved]
  - Exposure during pregnancy [Not Recovered/Not Resolved]
